FAERS Safety Report 18473224 (Version 1)
Quarter: 2020Q4

REPORT INFORMATION
  Report Type: Spontaneous
  Country: US (occurrence: US)
  Receive Date: 20201106
  Receipt Date: 20201106
  Transmission Date: 20210114
  Serious: Yes (Other)
  Sender: FDA-Public Use
  Company Number: US-BAYER-2020-233605

PATIENT
  Age: 93 Year

DRUGS (2)
  1. BAYER LOW DOSE [Suspect]
     Active Substance: ASPIRIN
     Indication: ANTICOAGULANT THERAPY
     Route: 048
  2. ELIQUIS [Suspect]
     Active Substance: APIXABAN

REACTIONS (3)
  - Cerebrovascular accident [Unknown]
  - Hypoaesthesia [Unknown]
  - Product use in unapproved indication [Unknown]
